FAERS Safety Report 6444540-2 (Version None)
Quarter: 2009Q4

REPORT INFORMATION
  Report Type: 
  Country: None (occurrence: None)
  Receive Date: 20091118
  Receipt Date: 20091021
  Transmission Date: 20100525
  Serious: No
  Sender: FDA-Public Use
  Company Number: A0782784A

PATIENT
  Age: 74 Year
  Sex: Male

DRUGS (10)
  1. COREG CR [Suspect]
     Dosage: 10MG ALTERNATE DAYS
     Route: 048
     Dates: start: 20090501
  2. CARVEDILOL [Suspect]
     Indication: DRUG USE FOR UNKNOWN INDICATION
     Dosage: 1.5625MG TWICE PER DAY
     Route: 048
     Dates: start: 20090914
  3. COREG [Suspect]
     Dosage: 1.563MG TWICE PER DAY
     Route: 048
     Dates: start: 20090909
  4. PLAVIX [Concomitant]
  5. DIAVAN [Concomitant]
  6. VITAMINS [Concomitant]
  7. MILK OF MAGNESIUM [Concomitant]
  8. BABY ASPIRIN [Concomitant]
  9. CALCIUM [Concomitant]
  10. DIOVAN [Concomitant]

REACTIONS (3)
  - ALOPECIA [None]
  - CONDITION AGGRAVATED [None]
  - HEART RATE DECREASED [None]
